FAERS Safety Report 21386459 (Version 1)
Quarter: 2022Q3

REPORT INFORMATION
  Report Type: Spontaneous
  Country: US (occurrence: None)
  Receive Date: 20220928
  Receipt Date: 20220928
  Transmission Date: 20221027
  Serious: No
  Sender: FDA-Public Use
  Company Number: 2022A311866

PATIENT
  Age: 480 Month
  Sex: Male
  Weight: 72.1 kg

DRUGS (1)
  1. BEVESPI AEROSPHERE [Suspect]
     Active Substance: FORMOTEROL FUMARATE\GLYCOPYRROLATE
     Indication: Asthma
     Route: 055

REACTIONS (7)
  - COVID-19 [Recovered/Resolved]
  - Asthma [Unknown]
  - Chest discomfort [Unknown]
  - Device use issue [Not Recovered/Not Resolved]
  - Expired device used [Unknown]
  - Device ineffective [Not Recovered/Not Resolved]
  - Wrong technique in device usage process [Unknown]

NARRATIVE: CASE EVENT DATE: 20211201
